FAERS Safety Report 16304219 (Version 2)
Quarter: 2019Q2

REPORT INFORMATION
  Report Type: Spontaneous
  Country: ES (occurrence: ES)
  Receive Date: 20190513
  Receipt Date: 20190523
  Transmission Date: 20190711
  Serious: Yes (Hospitalization, Other)
  Sender: FDA-Public Use
  Company Number: ES-AUROBINDO-AUR-APL-2019-025177

PATIENT

DRUGS (7)
  1. CALCIUM FOLINATE [Suspect]
     Active Substance: LEUCOVORIN CALCIUM
     Indication: COLON CANCER
     Dosage: UNK, CYCLICAL
     Route: 065
  2. IRINOTECAN [Suspect]
     Active Substance: IRINOTECAN
     Indication: PANCREATIC CARCINOMA STAGE IV
     Dosage: UNK, CYCLE
     Route: 065
  3. OXALIPLATIN. [Suspect]
     Active Substance: OXALIPLATIN
     Indication: COLON CANCER
     Dosage: UNK, CYCLE
     Route: 065
  4. OXALIPLATIN. [Suspect]
     Active Substance: OXALIPLATIN
     Indication: PANCREATIC CARCINOMA STAGE IV
  5. FLUOROURACIL. [Suspect]
     Active Substance: FLUOROURACIL
     Indication: PANCREATIC CARCINOMA STAGE IV
  6. CALCIUM FOLINATE [Suspect]
     Active Substance: LEUCOVORIN CALCIUM
     Indication: PANCREATIC CARCINOMA STAGE IV
  7. FLUOROURACIL. [Suspect]
     Active Substance: FLUOROURACIL
     Indication: COLON CANCER
     Dosage: UNK, CYCLE
     Route: 065

REACTIONS (10)
  - Abdominal distension [Unknown]
  - Hypoalbuminaemia [Recovered/Resolved]
  - Pain [Unknown]
  - Leukopenia [Recovered/Resolved]
  - Hypocalcaemia [Recovered/Resolved]
  - Vomiting [Unknown]
  - Enteritis [Recovered/Resolved]
  - Toxicity to various agents [Recovered/Resolved]
  - Coagulopathy [Recovered/Resolved]
  - Neutropenia [Recovered/Resolved]
